FAERS Safety Report 8492076-X (Version None)
Quarter: 2012Q2

REPORT INFORMATION
  Report Type: 
  Country: None (occurrence: None)
  Receive Date: 20120618
  Receipt Date: 20120601
  Transmission Date: 20120825
  Serious: Yes (Other)
  Sender: FDA-Public Use
  Company Number: LIT-068-12-BE

PATIENT
  Age: 73 Year
  Sex: Male

DRUGS (1)
  1. IMMUNE GLOBULIN INTRAVENOUS (HUMAN) [Suspect]
     Indication: GUILLAIN-BARRE SYNDROME
     Dosage: 40 MG/KG (5X 1/ TOTAL)
     Route: 042

REACTIONS (6)
  - ENCEPHALOPATHY [None]
  - VISION BLURRED [None]
  - AGITATION [None]
  - BLOOD PRESSURE INCREASED [None]
  - INFUSION RELATED REACTION [None]
  - TREMOR [None]
